FAERS Safety Report 19175739 (Version 5)
Quarter: 2022Q1

REPORT INFORMATION
  Report Type: Report from Study
  Country: CN (occurrence: None)
  Receive Date: 20210423
  Receipt Date: 20220329
  Transmission Date: 20220423
  Serious: Yes (Death)
  Sender: FDA-Public Use
  Company Number: CN-EISAI MEDICAL RESEARCH-EC-2021-091780

PATIENT
  Age: 62 Year
  Sex: Female
  Weight: 39 kg

DRUGS (12)
  1. LENVATINIB [Suspect]
     Active Substance: LENVATINIB
     Indication: Transitional cell carcinoma
     Route: 048
     Dates: start: 20210118, end: 20210418
  2. PEMBROLIZUMAB [Suspect]
     Active Substance: PEMBROLIZUMAB
     Indication: Transitional cell carcinoma
     Route: 041
     Dates: start: 20210118, end: 20210319
  3. PEMBROLIZUMAB [Suspect]
     Active Substance: PEMBROLIZUMAB
     Route: 041
     Dates: start: 20210409, end: 20210409
  4. OXYCODONE HYDROCHLORIDE [Concomitant]
     Active Substance: OXYCODONE HYDROCHLORIDE
     Dates: start: 20201228, end: 20210418
  5. OXYCODONE HYDROCHLORIDE [Concomitant]
     Active Substance: OXYCODONE HYDROCHLORIDE
     Dates: start: 20210115, end: 20210418
  6. PREGABALIN [Concomitant]
     Active Substance: PREGABALIN
     Dates: start: 20210115, end: 20210418
  7. PHELLODENDRON SPP. [Concomitant]
     Dates: start: 20210125, end: 20210418
  8. COPTIS CHINENSIS [Concomitant]
     Dates: start: 20210125, end: 20210418
  9. SHUANG QI GAN JUN SI LIAN HUO JUN [Concomitant]
     Dates: start: 20210220, end: 20210418
  10. DEXAMETHASONE [Concomitant]
     Active Substance: DEXAMETHASONE
     Dates: start: 20210317, end: 20210418
  11. AMINO ACIDS NOS;ELECTROLYTES NOS;GLUCOSE;LIPIDS NOS [Concomitant]
     Dates: start: 20210406, end: 20210408
  12. DEXAMETHASONE ACETATE [Concomitant]
     Active Substance: DEXAMETHASONE ACETATE
     Dates: start: 20210317, end: 20210408

REACTIONS (1)
  - Death [Fatal]

NARRATIVE: CASE EVENT DATE: 20210418
